FAERS Safety Report 24029719 (Version 2)
Quarter: 2024Q3

REPORT INFORMATION
  Report Type: Spontaneous
  Country: TW (occurrence: TW)
  Receive Date: 20240628
  Receipt Date: 20240703
  Transmission Date: 20241017
  Serious: Yes (Hospitalization, Other)
  Sender: PFIZER
  Company Number: TW-PFIZER INC-PV202400084381

PATIENT
  Age: 61 Year
  Sex: Female

DRUGS (1)
  1. XELJANZ XR [Suspect]
     Active Substance: TOFACITINIB CITRATE
     Indication: Rheumatoid arthritis
     Dosage: 11 MG, 1X/DAY
     Route: 048
     Dates: start: 2020, end: 20240626

REACTIONS (1)
  - Spondylolisthesis [Not Recovered/Not Resolved]
